FAERS Safety Report 7738774-4 (Version None)
Quarter: 2011Q3

REPORT INFORMATION
  Report Type: 
  Country: None (occurrence: None)
  Receive Date: 20110908
  Receipt Date: 20110829
  Transmission Date: 20111222
  Serious: Yes (Hospitalization)
  Sender: FDA-Public Use
  Company Number: US-MPIJNJ-2011-03590

PATIENT
  Sex: Male
  Weight: 91.338 kg

DRUGS (1)
  1. VELCADE [Suspect]
     Indication: MULTIPLE MYELOMA
     Dosage: 2.6 MG, CYCLIC
     Route: 042
     Dates: start: 20110223, end: 20110302

REACTIONS (4)
  - RENAL FAILURE ACUTE [None]
  - METABOLIC ACIDOSIS [None]
  - ANAEMIA [None]
  - UROSEPSIS [None]
